FAERS Safety Report 12841432 (Version 3)
Quarter: 2016Q4

REPORT INFORMATION
  Report Type: Report from Study
  Country: None (occurrence: BR)
  Receive Date: 20161012
  Receipt Date: 20161228
  Transmission Date: 20170207
  Serious: Yes (Other)
  Sender: FDA-Public Use
  Company Number: BR-ABBVIE-16K-020-1726508-00

PATIENT
  Age: 59 Year
  Sex: Female
  Weight: 67 kg

DRUGS (11)
  1. HUMIRA [Suspect]
     Active Substance: ADALIMUMAB
     Indication: PSORIASIS
     Dosage: LOADING DOSE (WEEK 0)
     Route: 058
     Dates: start: 20140708, end: 20140708
  2. RANITIDINE. [Concomitant]
     Active Substance: RANITIDINE
     Indication: GASTRITIS PROPHYLAXIS
     Dosage: 1 TABLET
     Route: 048
     Dates: start: 201606
  3. HUMIRA [Suspect]
     Active Substance: ADALIMUMAB
     Route: 058
     Dates: start: 201407, end: 20160730
  4. PSORIASIN [Concomitant]
     Active Substance: COAL TAR
     Indication: PSORIASIS
     Route: 061
     Dates: start: 2014
  5. HIPOGLOS [Concomitant]
     Active Substance: LANOLIN\ZINC OXIDE
     Indication: SKIN IRRITATION
     Dosage: EVERY DAY
     Route: 061
  6. RANITIDINE. [Concomitant]
     Active Substance: RANITIDINE
     Dosage: 1 TABLET
     Route: 048
     Dates: start: 201609
  7. TYLEX [Concomitant]
     Active Substance: ACETAMINOPHEN\CODEINE PHOSPHATE
     Indication: PAIN
     Route: 048
  8. HUMIRA [Suspect]
     Active Substance: ADALIMUMAB
     Dosage: LOADING DOSE
     Route: 058
     Dates: start: 20161216, end: 20161216
  9. PARACETAMOL [Concomitant]
     Active Substance: ACETAMINOPHEN
     Indication: PAIN
     Dosage: 1 OR 2 TABLETS A DAILY/ ALWAYS USED
     Route: 048
  10. DIPROGENTA [Concomitant]
     Active Substance: BETAMETHASONE DIPROPIONATE\GENTAMICIN SULFATE
     Indication: DRY SKIN
     Dosage: ALWAYS USED
     Route: 061
  11. SIMETHICONE (DIMETHICONE) [Concomitant]
     Active Substance: DIMETHICONE
     Indication: FLATULENCE
     Dosage: ALWAYS USED
     Route: 048

REACTIONS (5)
  - Endometrial disorder [Not Recovered/Not Resolved]
  - Nail psoriasis [Recovered/Resolved]
  - Hyperaesthesia [Unknown]
  - Spinal disorder [Unknown]
  - Psoriasis [Not Recovered/Not Resolved]

NARRATIVE: CASE EVENT DATE: 201605
